FAERS Safety Report 17418624 (Version 2)
Quarter: 2020Q1

REPORT INFORMATION
  Report Type: Spontaneous
  Country: BG (occurrence: BG)
  Receive Date: 20200214
  Receipt Date: 20200317
  Transmission Date: 20200409
  Serious: Yes (Death, Life-Threatening, Hospitalization)
  Sender: FDA-Public Use
  Company Number: BG-BIOGEN-2020BI00838512

PATIENT
  Age: 1 Year
  Sex: Male

DRUGS (2)
  1. SPINRAZA [Suspect]
     Active Substance: NUSINERSEN
     Indication: SPINAL MUSCULAR ATROPHY
     Dosage: THREE LOADING DOSES
     Route: 037
     Dates: start: 20191024
  2. SPINRAZA [Suspect]
     Active Substance: NUSINERSEN
     Dosage: FOURTH LOADING DOSE
     Route: 037
     Dates: start: 20191219

REACTIONS (4)
  - Death [Fatal]
  - Brain oedema [Not Recovered/Not Resolved]
  - Pneumonia [Not Recovered/Not Resolved]
  - Coma [Not Recovered/Not Resolved]

NARRATIVE: CASE EVENT DATE: 2020
